FAERS Safety Report 23526732 (Version 1)
Quarter: 2024Q1

REPORT INFORMATION
  Report Type: Spontaneous
  Country: US (occurrence: None)
  Receive Date: 20240214
  Receipt Date: 20240214
  Transmission Date: 20240409
  Serious: Yes (Death, Hospitalization)
  Sender: FDA-Public Use
  Company Number: None

PATIENT
  Age: 71 Year
  Sex: Male

DRUGS (1)
  1. LENALIDOMIDE [Suspect]
     Active Substance: LENALIDOMIDE
     Indication: Plasma cell myeloma
     Dosage: FREQUENCY : DAILY;?
     Route: 048
     Dates: start: 20231003, end: 20231119

REACTIONS (7)
  - Hypophagia [None]
  - Asthenia [None]
  - Fall [None]
  - Haematochezia [None]
  - Sepsis [None]
  - Hypotension [None]
  - Therapy interrupted [None]

NARRATIVE: CASE EVENT DATE: 20240214
